FAERS Safety Report 14897770 (Version 1)
Quarter: 2018Q2

REPORT INFORMATION
  Report Type: Spontaneous
  Country: FR (occurrence: FR)
  Receive Date: 20180515
  Receipt Date: 20180515
  Transmission Date: 20180711
  Serious: Yes (Other)
  Sender: FDA-Public Use
  Company Number: FR-TEVA-2018-FR-891361

PATIENT
  Age: 61 Year
  Sex: Female
  Weight: 50 kg

DRUGS (8)
  1. ZAMUDOL L.P. 100 MG, G?LULE ? LIB?RATION PROLONG?E [Concomitant]
     Indication: BACK PAIN
     Dosage: 2 DOSAGE FORMS DAILY;
     Route: 048
     Dates: start: 201710
  2. ROXITHROMYCINE [Suspect]
     Active Substance: ROXITHROMYCIN
     Indication: TRACHEITIS
     Dosage: 300 MILLIGRAM DAILY;
     Route: 048
     Dates: start: 20180115, end: 20180117
  3. OXOMEMAZINE [Suspect]
     Active Substance: OXOMEMAZINE
     Indication: TRACHEITIS
     Dosage: 30 ML DAILY;
     Route: 048
     Dates: start: 20180115
  4. PERNAZENE (TYMAZOLINE) [Suspect]
     Active Substance: TYMAZOLINE
     Indication: TRACHEITIS
     Dosage: 3 DOSAGE FORMS DAILY;
     Route: 045
     Dates: start: 20170109, end: 20170115
  5. POLERY ADULTES, SIROP [Suspect]
     Active Substance: CODEINE\SISYMBRIUM OFFICINALE WHOLE
     Indication: TRACHEITIS
     Route: 048
     Dates: start: 20180109, end: 20180109
  6. ARTOTEC [Concomitant]
     Active Substance: DICLOFENAC SODIUM\MISOPROSTOL
     Dosage: 2 DOSAGE FORMS DAILY;
     Route: 048
     Dates: start: 201710
  7. QVAR [Suspect]
     Active Substance: BECLOMETHASONE DIPROPIONATE
     Indication: TRACHEITIS
     Dosage: 6 DOSAGE FORMS DAILY;
     Route: 048
     Dates: start: 20180115
  8. BETAMETHASONE. [Suspect]
     Active Substance: BETAMETHASONE
     Indication: TRACHEITIS
     Route: 048
     Dates: start: 20180109, end: 20180115

REACTIONS (1)
  - Tendonitis [Recovered/Resolved]

NARRATIVE: CASE EVENT DATE: 20180118
